FAERS Safety Report 4559256-7 (Version None)
Quarter: 2005Q1

REPORT INFORMATION
  Report Type: 
  Country: None (occurrence: None)
  Receive Date: 20050124
  Receipt Date: 20020724
  Transmission Date: 20050727
  Serious: Yes (Hospitalization)
  Sender: FDA-Public Use
  Company Number: US-ROCHE-318122

PATIENT
  Age: 22 Year
  Sex: Male
  Weight: 95.7 kg

DRUGS (5)
  1. ACCUTANE [Suspect]
     Indication: ACNE
     Route: 048
     Dates: start: 19990602, end: 20001010
  2. ROBAXIN [Concomitant]
     Route: 048
     Dates: start: 20000510
  3. INDOCIN SR [Concomitant]
     Route: 048
     Dates: start: 20000510
  4. AMITRIPTYLINE [Concomitant]
     Route: 048
  5. VITAMIN B6 [Concomitant]
     Indication: VITAMIN SUPPLEMENTATION
     Dosage: DOSE STATED AS 1 QHS
     Route: 048

REACTIONS (49)
  - ADJUSTMENT DISORDER [None]
  - ALOPECIA [None]
  - AMNESIA [None]
  - ANGER [None]
  - ANXIETY [None]
  - ARTHRALGIA [None]
  - BALANCE DISORDER [None]
  - BIPOLAR DISORDER [None]
  - BORDERLINE PERSONALITY DISORDER [None]
  - CHEST PAIN [None]
  - CHILLS [None]
  - CHRONIC SINUSITIS [None]
  - CONFUSIONAL STATE [None]
  - DEPENDENT PERSONALITY DISORDER [None]
  - DEPRESSION [None]
  - DIPLOPIA [None]
  - ENCEPHALOMALACIA [None]
  - EYE INJURY [None]
  - EYE SWELLING [None]
  - FEELING ABNORMAL [None]
  - FEELING HOT [None]
  - GRAND MAL CONVULSION [None]
  - HEADACHE [None]
  - HYPERHIDROSIS [None]
  - IMPULSIVE BEHAVIOUR [None]
  - INSOMNIA [None]
  - INTENTIONAL SELF-INJURY [None]
  - IRRITABILITY [None]
  - MAJOR DEPRESSION [None]
  - MUSCULOSKELETAL DISCOMFORT [None]
  - NECK PAIN [None]
  - OBSESSIVE-COMPULSIVE PERSONALITY DISORDER [None]
  - OCULAR HYPERAEMIA [None]
  - PAIN IN EXTREMITY [None]
  - PARAESTHESIA [None]
  - POLYTRAUMATISM [None]
  - POST PROCEDURAL COMPLICATION [None]
  - RELATIONSHIP BREAKDOWN [None]
  - SOMNOLENCE [None]
  - STRABISMUS [None]
  - STRESS [None]
  - SUICIDAL IDEATION [None]
  - SUICIDE ATTEMPT [None]
  - THINKING ABNORMAL [None]
  - TOOTH EXTRACTION [None]
  - TOOTHACHE [None]
  - TREMOR [None]
  - VISUAL ACUITY REDUCED [None]
  - WEIGHT DECREASED [None]
